FAERS Safety Report 5363487-6 (Version None)
Quarter: 2007Q2

REPORT INFORMATION
  Report Type: 
  Country: None (occurrence: None)
  Receive Date: 20070620
  Receipt Date: 20070611
  Transmission Date: 20071010
  Serious: Yes (Other)
  Sender: FDA-Public Use
  Company Number: FR-ROCHE-491308

PATIENT
  Age: 69 Year
  Sex: Female
  Weight: 73 kg

DRUGS (2)
  1. BONIVA [Suspect]
     Indication: OSTEOPOROSIS
     Route: 048
     Dates: start: 20070223
  2. OROCAL D3 [Concomitant]
     Route: 048
     Dates: start: 20050101

REACTIONS (3)
  - HYPERAESTHESIA [None]
  - PAIN IN JAW [None]
  - TOOTH ABSCESS [None]
